FAERS Safety Report 7533036-2 (Version None)
Quarter: 2011Q2

REPORT INFORMATION
  Report Type: 
  Country: None (occurrence: None)
  Receive Date: 20110608
  Receipt Date: 20110602
  Transmission Date: 20111010
  Serious: Yes (Death)
  Sender: FDA-Public Use
  Company Number: US-CELGENEUS-163-21880-11043777

PATIENT
  Sex: Male

DRUGS (7)
  1. REVLIMID [Suspect]
     Indication: MULTIPLE MYELOMA
     Dosage: 25 MILLIGRAM
     Route: 048
     Dates: start: 20110328, end: 20110101
  2. COUMADIN [Concomitant]
     Dosage: 6 MILLIGRAM
     Route: 065
     Dates: start: 20110328
  3. CHLORPROMAZINE [Concomitant]
     Indication: HICCUPS
     Dosage: 1
     Route: 065
     Dates: start: 20110331
  4. PHENERGAN HCL [Concomitant]
     Dosage: 25 MILLIGRAM
     Route: 065
     Dates: start: 20110324
  5. DILAUDID [Concomitant]
     Route: 065
     Dates: start: 20110328
  6. OXYCONTIN [Concomitant]
     Dosage: 20 MILLIGRAM
     Route: 048
     Dates: start: 20110328
  7. COMPAZINE [Concomitant]
     Dosage: 1
     Route: 065
     Dates: start: 20110324

REACTIONS (2)
  - MULTI-ORGAN FAILURE [None]
  - MULTIPLE MYELOMA [None]
